FAERS Safety Report 18890748 (Version 3)
Quarter: 2021Q2

REPORT INFORMATION
  Report Type: Report from Study
  Country: None (occurrence: US)
  Receive Date: 20210215
  Receipt Date: 20210429
  Transmission Date: 20210717
  Serious: Yes (Hospitalization, Other)
  Sender: FDA-Public Use
  Company Number: US-ABBVIE-21K-163-3770643-00

PATIENT
  Sex: Female
  Weight: 83.08 kg

DRUGS (11)
  1. LIRAGLUTIDE [Concomitant]
     Active Substance: LIRAGLUTIDE
     Indication: PRODUCT USED FOR UNKNOWN INDICATION
     Dosage: 0.6MG/0.1ML
  2. LOSARTAN. [Concomitant]
     Active Substance: LOSARTAN
     Indication: HYPERTENSION
  3. FISH OIL [Concomitant]
     Active Substance: FISH OIL
     Indication: PRODUCT USED FOR UNKNOWN INDICATION
  4. OXYGEN. [Concomitant]
     Active Substance: OXYGEN
     Indication: PRODUCT USED FOR UNKNOWN INDICATION
  5. LEFLUNOMIDE. [Concomitant]
     Active Substance: LEFLUNOMIDE
     Indication: RHEUMATOID ARTHRITIS
  6. PREDNISONE. [Concomitant]
     Active Substance: PREDNISONE
     Indication: RHEUMATOID ARTHRITIS
  7. HUMIRA [Suspect]
     Active Substance: ADALIMUMAB
     Indication: RHEUMATOID ARTHRITIS
     Dosage: CF
     Route: 058
     Dates: start: 20190815, end: 20191208
  8. SIMVASTATIN. [Concomitant]
     Active Substance: SIMVASTATIN
     Indication: BLOOD CHOLESTEROL INCREASED
  9. METFORMIN [Concomitant]
     Active Substance: METFORMIN HYDROCHLORIDE
     Indication: TYPE 2 DIABETES MELLITUS
  10. HUMIRA [Suspect]
     Active Substance: ADALIMUMAB
     Dosage: CF
     Route: 058
     Dates: start: 20210126
  11. VITAMIN B12 [Concomitant]
     Active Substance: CYANOCOBALAMIN
     Indication: PRODUCT USED FOR UNKNOWN INDICATION

REACTIONS (36)
  - Gait inability [Unknown]
  - Blood albumin decreased [Unknown]
  - Leukocytosis [Unknown]
  - Sinus tachycardia [Unknown]
  - Nasopharyngitis [Unknown]
  - Red blood cell count decreased [Unknown]
  - Dysstasia [Unknown]
  - Neutrophil count increased [Unknown]
  - Blood urine present [Unknown]
  - Anion gap decreased [Unknown]
  - Lymphocyte count increased [Unknown]
  - Erythema [Recovering/Resolving]
  - Swelling [Unknown]
  - Hypersensitivity [Unknown]
  - Mean cell volume decreased [Unknown]
  - Urinary tract infection [Unknown]
  - Monocyte count increased [Unknown]
  - Glycosylated haemoglobin increased [Unknown]
  - Blood glucose increased [Unknown]
  - Blood potassium decreased [Unknown]
  - Blood phosphorus decreased [Unknown]
  - Rheumatoid arthritis [Not Recovered/Not Resolved]
  - General physical health deterioration [Unknown]
  - Blood chloride increased [Unknown]
  - Protein urine present [Unknown]
  - Lipase decreased [Unknown]
  - Haemoglobin decreased [Unknown]
  - Blood sodium increased [Unknown]
  - Urine ketone body present [Unknown]
  - Pain [Unknown]
  - Osteoarthritis [Unknown]
  - Procalcitonin increased [Unknown]
  - Platelet count decreased [Unknown]
  - Malaise [Unknown]
  - Sepsis [Unknown]
  - Drug ineffective [Unknown]

NARRATIVE: CASE EVENT DATE: 2019
